FAERS Safety Report 19881850 (Version 2)
Quarter: 2021Q4

REPORT INFORMATION
  Report Type: Report from Study
  Country: US (occurrence: US)
  Receive Date: 20210924
  Receipt Date: 20211006
  Transmission Date: 20220303
  Serious: No
  Sender: FDA-Public Use
  Company Number: NVSC2021US216967

PATIENT
  Age: 74 Year
  Sex: Female

DRUGS (1)
  1. ENTRESTO [Suspect]
     Active Substance: SACUBITRIL\VALSARTAN
     Indication: Cardiac failure
     Dosage: 1 DF, QD
     Route: 048
     Dates: start: 202108

REACTIONS (2)
  - Inappropriate schedule of product administration [Unknown]
  - Hypotension [Unknown]

NARRATIVE: CASE EVENT DATE: 20210801
